FAERS Safety Report 8804846 (Version 1)
Quarter: 2012Q4

REPORT INFORMATION
  Report Type: 
  Country: US (occurrence: US)
  Receive Date: 20120924
  Receipt Date: 20120924
  Transmission Date: 20130627
  Serious: Yes (Disabling, Other)
  Sender: FDA-Public Use
  Company Number: US-JNJFOC-20110802492

PATIENT
  Sex: Male

DRUGS (2)
  1. LEVAQUIN [Suspect]
     Indication: BACTERIAL INFECTION
     Route: 048
  2. TEQUIN [Suspect]
     Indication: INFECTION
     Route: 065

REACTIONS (2)
  - Rotator cuff syndrome [Unknown]
  - Rotator cuff syndrome [Unknown]
